FAERS Safety Report 10300465 (Version 1)
Quarter: 2014Q3

REPORT INFORMATION
  Report Type: Report from Study
  Country: BD (occurrence: BD)
  Receive Date: 20140713
  Receipt Date: 20140713
  Transmission Date: 20150326
  Serious: Yes (Death)
  Sender: FDA-Public Use
  Company Number: PHHY2013BD158025

PATIENT
  Age: 84 Year
  Sex: Male

DRUGS (1)
  1. EXELON PATCH [Suspect]
     Active Substance: RIVASTIGMINE
     Indication: DEMENTIA
     Dosage: 9.5 MG/24 HRS (10CM)
     Route: 062
     Dates: start: 201108, end: 201203

REACTIONS (1)
  - Lower limb fracture [Fatal]
